FAERS Safety Report 4861141-8 (Version None)
Quarter: 2005Q4

REPORT INFORMATION
  Report Type: 
  Country: None (occurrence: None)
  Receive Date: 20051220
  Receipt Date: 20051212
  Transmission Date: 20060501
  Serious: Yes (Hospitalization)
  Sender: FDA-Public Use
  Company Number: US-GILEAD-2005-0009020

PATIENT
  Sex: Male
  Weight: 71 kg

DRUGS (13)
  1. BLINDED EMTRICITABINE/TENOFOVIR DF OR PLACEBO [Suspect]
     Indication: HIV INFECTION
     Dosage: 200/300 MG
     Route: 048
     Dates: start: 20051116, end: 20051126
  2. BLINDED ABACAVIR/LAMIVUDINE OR PLACEBO [Suspect]
     Indication: HIV INFECTION
     Route: 048
     Dates: start: 20051116, end: 20051126
  3. BLINDED ABACAVIR/LAMIVUDINE VS. PLACEBO [Suspect]
     Indication: HIV INFECTION
     Route: 048
     Dates: start: 20051116, end: 20051126
  4. BLINDED ABACAVIR/LAMIVUDINE VS. PLACEBO [Suspect]
     Dates: start: 20051127
  5. ATAZANAVIR [Concomitant]
     Indication: HIV INFECTION
     Route: 048
     Dates: start: 20051116, end: 20051126
  6. ATAZANAVIR [Concomitant]
     Dates: start: 20051128
  7. RITONAVIR [Concomitant]
     Indication: HIV INFECTION
     Route: 048
     Dates: start: 20051116, end: 20051126
  8. RITONAVIR [Concomitant]
     Dates: start: 20051128
  9. NASONEX [Concomitant]
     Indication: NASAL CONGESTION
     Route: 045
     Dates: start: 20051003
  10. CLOTRIMAZOLE [Concomitant]
     Indication: CANDIDIASIS
     Route: 048
     Dates: start: 20050830
  11. AZITHROMYCIN [Concomitant]
     Indication: ANTIBIOTIC PROPHYLAXIS
     Route: 048
     Dates: start: 20050919
  12. MULTI-VITAMIN [Concomitant]
     Indication: MEDICAL DIET
     Route: 048
     Dates: start: 20050817
  13. SULFAMETHOXAZOLE + TRIMETHOPRIM [Concomitant]
     Indication: ANTIBIOTIC PROPHYLAXIS
     Dosage: 400/800 MG
     Route: 048
     Dates: start: 20050817

REACTIONS (2)
  - HYPERSENSITIVITY [None]
  - URINARY TRACT INFECTION [None]
